FAERS Safety Report 6715305-9 (Version None)
Quarter: 2010Q2

REPORT INFORMATION
  Report Type: 
  Country: None (occurrence: None)
  Receive Date: 20100507
  Receipt Date: 20100430
  Transmission Date: 20101027
  Serious: Yes (Hospitalization, Other)
  Sender: FDA-Public Use
  Company Number: US-PFIZER INC-2010055283

PATIENT
  Age: 69 Year
  Sex: Male
  Weight: 68 kg

DRUGS (8)
  1. XANAX [Suspect]
     Indication: ANXIETY
  2. LOMOTIL [Suspect]
  3. NEURONTIN [Suspect]
  4. GX15-070 [Suspect]
     Indication: NON-HODGKIN'S LYMPHOMA
     Dosage: 14 MG/M2, CYCLIC
     Route: 042
     Dates: start: 20100302
  5. VELCADE [Suspect]
     Indication: NON-HODGKIN'S LYMPHOMA
     Dosage: 1.3 MG/M2, CYCLIC
     Route: 040
     Dates: start: 20100302
  6. DILAUDID [Suspect]
     Indication: BACK PAIN
  7. PERCOCET [Suspect]
     Indication: BACK PAIN
  8. VICODIN [Suspect]
     Indication: BACK PAIN

REACTIONS (2)
  - SOMNOLENCE [None]
  - THERMAL BURN [None]
